FAERS Safety Report 7842956-0 (Version None)
Quarter: 2011Q4

REPORT INFORMATION
  Report Type: 
  Country: None (occurrence: None)
  Receive Date: 20111025
  Receipt Date: 20111012
  Transmission Date: 20120403
  Serious: Yes (Hospitalization, Other)
  Sender: FDA-Public Use
  Company Number: CA-ELI_LILLY_AND_COMPANY-CA201110002752

PATIENT
  Sex: Female

DRUGS (1)
  1. ZYPREXA [Suspect]

REACTIONS (4)
  - PANCREATITIS [None]
  - BLOOD TRIGLYCERIDES INCREASED [None]
  - BIPOLAR DISORDER [None]
  - HYPERGLYCAEMIA [None]
